FAERS Safety Report 11572412 (Version 1)
Quarter: 2015Q3

REPORT INFORMATION
  Report Type: Spontaneous
  Country: US (occurrence: US)
  Receive Date: 20150929
  Receipt Date: 20150929
  Transmission Date: 20151125
  Serious: No
  Sender: FDA-Public Use
  Company Number: US-SHIONOGI, INC-2015000250

PATIENT
  Age: 52 Year
  Sex: Female

DRUGS (2)
  1. OSPHENA [Suspect]
     Active Substance: OSPEMIFENE
     Indication: ATROPHIC VULVOVAGINITIS
     Dosage: 60 MG, QOD
     Route: 065
     Dates: start: 20150227
  2. OSPHENA [Suspect]
     Active Substance: OSPEMIFENE
     Indication: DYSPAREUNIA
     Dosage: 60 MG, QD
     Route: 065
     Dates: start: 201501, end: 20150227

REACTIONS (10)
  - Emotional disorder [Unknown]
  - Stress urinary incontinence [Unknown]
  - Back pain [Unknown]
  - Weight decreased [Unknown]
  - Therapeutic response unexpected [Unknown]
  - Middle insomnia [Unknown]
  - Libido increased [Unknown]
  - Prescribed underdose [Not Recovered/Not Resolved]
  - Alopecia [Unknown]
  - Crying [Unknown]

NARRATIVE: CASE EVENT DATE: 201501
